FAERS Safety Report 19696883 (Version 1)
Quarter: 2021Q3

REPORT INFORMATION
  Report Type: Spontaneous
  Country: US (occurrence: US)
  Receive Date: 20210813
  Receipt Date: 20210813
  Transmission Date: 20211014
  Serious: Yes (Hospitalization)
  Sender: FDA-Public Use
  Company Number: None

PATIENT
  Age: 58 Year
  Sex: Male
  Weight: 71.2 kg

DRUGS (1)
  1. CISPLATIN. [Suspect]
     Active Substance: CISPLATIN
     Dates: end: 20210624

REACTIONS (8)
  - Fatigue [None]
  - Lung consolidation [None]
  - Asthenia [None]
  - Anaemia [None]
  - Pneumonia necrotising [None]
  - Lung abscess [None]
  - Productive cough [None]
  - Dizziness [None]

NARRATIVE: CASE EVENT DATE: 20210726
